FAERS Safety Report 9307929 (Version 2)
Quarter: 2013Q3

REPORT INFORMATION
  Report Type: Spontaneous
  Country: US (occurrence: US)
  Receive Date: 20130524
  Receipt Date: 20130807
  Transmission Date: 20140515
  Serious: Yes (Hospitalization)
  Sender: FDA-Public Use
  Company Number: US-ELI_LILLY_AND_COMPANY-US201305006323

PATIENT
  Age: 72 Year
  Sex: Female
  Weight: 68.48 kg

DRUGS (2)
  1. HUMALOG LISPRO [Suspect]
     Route: 058
  2. HUMALOG LISPRO [Suspect]
     Dosage: 10 U, SINGLE
     Dates: start: 20130516, end: 20130516

REACTIONS (1)
  - Diabetic ketoacidosis [Unknown]
